FAERS Safety Report 25239057 (Version 2)
Quarter: 2025Q2

REPORT INFORMATION
  Report Type: Report from Study
  Country: US (occurrence: US)
  Receive Date: 20250425
  Receipt Date: 20250522
  Transmission Date: 20250716
  Serious: Yes (Hospitalization)
  Sender: ACADIA PHARMACEUTICALS
  Company Number: US-ACADIA PHARMACEUTICALS INC.-ACA-2025-PIM-004807

PATIENT
  Age: 88 Year
  Sex: Female

DRUGS (21)
  1. NUPLAZID [Suspect]
     Active Substance: PIMAVANSERIN TARTRATE
     Indication: Parkinson^s disease
     Dosage: 34 MILLIGRAM, QD
     Route: 048
     Dates: start: 20240208
  2. MELOXICAM [Concomitant]
     Active Substance: MELOXICAM
  3. VITAMIN D3 [Concomitant]
     Active Substance: CHOLECALCIFEROL
  4. AMANTADINE [Concomitant]
     Active Substance: AMANTADINE
  5. HYDROCHLOROTHIAZIDE [Concomitant]
     Active Substance: HYDROCHLOROTHIAZIDE
  6. AMLODIPINE [Concomitant]
     Active Substance: AMLODIPINE BESYLATE
  7. GABAPENTIN [Concomitant]
     Active Substance: GABAPENTIN
  8. DONEPEZIL [Concomitant]
     Active Substance: DONEPEZIL
  9. PRAMIPEXOLE [Concomitant]
     Active Substance: PRAMIPEXOLE
  10. EZETIMIBE [Concomitant]
     Active Substance: EZETIMIBE
  11. MINERALS\VITAMINS [Concomitant]
     Active Substance: MINERALS\VITAMINS
  12. SENNA [Concomitant]
     Active Substance: SENNOSIDES
  13. SINEMET [Concomitant]
     Active Substance: CARBIDOPA\LEVODOPA
  14. TRAMADOL [Concomitant]
     Active Substance: TRAMADOL
  15. TYLENOL [Concomitant]
     Active Substance: ACETAMINOPHEN
  16. BENZONATATE [Concomitant]
     Active Substance: BENZONATATE
  17. BUPRENORPHINE [Concomitant]
     Active Substance: BUPRENORPHINE
  18. CEFDINIR [Concomitant]
     Active Substance: CEFDINIR
  19. CHOLECALCIFEROL [Concomitant]
     Active Substance: CHOLECALCIFEROL
  20. PERDIEM [Concomitant]
     Active Substance: SENNOSIDES
  21. MIRALAX [Concomitant]
     Active Substance: POLYETHYLENE GLYCOL 3350

REACTIONS (2)
  - Urinary tract infection [Unknown]
  - Product dose omission issue [Unknown]

NARRATIVE: CASE EVENT DATE: 20250322
